FAERS Safety Report 5395091-8 (Version None)
Quarter: 2007Q3

REPORT INFORMATION
  Report Type: 
  Country: None (occurrence: None)
  Receive Date: 20070724
  Receipt Date: 20070713
  Transmission Date: 20080115
  Serious: Yes (Other)
  Sender: FDA-Public Use
  Company Number: SE-NOVOPROD-265246

PATIENT
  Sex: Female
  Weight: 27 kg

DRUGS (1)
  1. NORDITROPIN [Suspect]
     Indication: PRADER-WILLI SYNDROME
     Dosage: .7 MG, QD
     Dates: start: 20050428

REACTIONS (2)
  - ARRHYTHMIA [None]
  - SUPRAVENTRICULAR TACHYCARDIA [None]
